FAERS Safety Report 8307346-5 (Version None)
Quarter: 2012Q2

REPORT INFORMATION
  Report Type: 
  Country: None (occurrence: None)
  Receive Date: 20120424
  Receipt Date: 20120417
  Transmission Date: 20120825
  Serious: Yes (Hospitalization)
  Sender: FDA-Public Use
  Company Number: US-BAYER-2012-039315

PATIENT
  Age: 19 Year
  Sex: Female
  Weight: 55.1 kg

DRUGS (7)
  1. TYLENOL (CAPLET) [Concomitant]
  2. TORADOL [Concomitant]
  3. CELEBREX [Concomitant]
  4. COLACE [Concomitant]
  5. VICODIN [Concomitant]
  6. YASMIN [Suspect]
  7. FERROUS SULFATE TAB [Concomitant]

REACTIONS (1)
  - PULMONARY EMBOLISM [None]
